FAERS Safety Report 8179337-9 (Version None)
Quarter: 2012Q1

REPORT INFORMATION
  Report Type: 
  Country: None (occurrence: None)
  Receive Date: 20120302
  Receipt Date: 20120223
  Transmission Date: 20120608
  Serious: Yes (Hospitalization)
  Sender: FDA-Public Use
  Company Number: US-ABBOTT-12P-163-0909146-00

PATIENT
  Sex: Male
  Weight: 104.42 kg

DRUGS (9)
  1. FOLIC ACID [Concomitant]
     Indication: RHEUMATOID ARTHRITIS
  2. VITAMIN D [Concomitant]
     Indication: VITAMIN D DECREASED
  3. HYDROCODONE BITARTRATE [Concomitant]
     Indication: PAIN
  4. METHOTREXATE [Concomitant]
     Indication: RHEUMATOID ARTHRITIS
     Dates: start: 20111101
  5. NAPROXEN [Concomitant]
     Indication: RHEUMATOID ARTHRITIS
  6. PRILOSEC [Concomitant]
     Indication: GASTROOESOPHAGEAL REFLUX DISEASE
  7. CYMBALTA [Concomitant]
     Indication: RHEUMATOID ARTHRITIS
  8. HUMIRA [Suspect]
     Indication: RHEUMATOID ARTHRITIS
     Dates: start: 20120101
  9. CYMBALTA [Concomitant]
     Indication: PAIN

REACTIONS (5)
  - CHEST DISCOMFORT [None]
  - INFLUENZA [None]
  - HYPOTENSION [None]
  - PRESYNCOPE [None]
  - ATRIAL FIBRILLATION [None]
